FAERS Safety Report 19388999 (Version 1)
Quarter: 2021Q2

REPORT INFORMATION
  Report Type: Spontaneous
  Country: US (occurrence: US)
  Receive Date: 20210607
  Receipt Date: 20210607
  Transmission Date: 20210717
  Serious: No
  Sender: FDA-Public Use
  Company Number: US-FDC LIMITED-2020RIS00512

PATIENT
  Age: 77 Year
  Sex: Female
  Weight: 71.2 kg

DRUGS (5)
  1. COLLAGEN VITAMINS [Concomitant]
  2. ATENOLOL. [Concomitant]
     Active Substance: ATENOLOL
  3. LEVOTHYROXINE. [Concomitant]
     Active Substance: LEVOTHYROXINE
  4. MULTIVITAMINS [Concomitant]
     Active Substance: VITAMINS
  5. TIMOLOL MALEATE. [Suspect]
     Active Substance: TIMOLOL MALEATE
     Indication: GLAUCOMA
     Dosage: 1 DROP (^0.5MG^), 2X/DAY (MORNING AND NIGHT) INTO THE LEFT EYE ONLY
     Dates: start: 20201024, end: 20201222

REACTIONS (1)
  - Alopecia [Recovering/Resolving]

NARRATIVE: CASE EVENT DATE: 202010
